FAERS Safety Report 19649086 (Version 2)
Quarter: 2021Q3

REPORT INFORMATION
  Report Type: Spontaneous
  Country: GB (occurrence: GB)
  Receive Date: 20210802
  Receipt Date: 20210818
  Transmission Date: 20211014
  Serious: Yes (Other)
  Sender: FDA-Public Use
  Company Number: GB-TEVA-2021-GB-1937378

PATIENT
  Age: 68 Year
  Sex: Female
  Weight: 63 kg

DRUGS (11)
  1. ACCRETE D3 [Concomitant]
     Active Substance: CALCIUM CARBONATE\CHOLECALCIFEROL
     Dosage: 2 DOSAGE FORMS DAILY;
     Dates: start: 20200221
  2. MELOXICAM. [Concomitant]
     Active Substance: MELOXICAM
     Dosage: 1 DOSAGE FORMS DAILY;
     Dates: start: 20181127
  3. OMEPRAZOLE. [Concomitant]
     Active Substance: OMEPRAZOLE
     Dosage: 1 DOSAGE FORMS DAILY;
     Dates: start: 20181127
  4. SENNA [Concomitant]
     Active Substance: SENNA LEAF\SENNOSIDES\SENNOSIDES A AND B
     Dosage: TAKE 1 OR 2 AT NIGHT WHEN NEEDED
     Dates: start: 20210520
  5. BENDROFLUMETHIAZIDE [Concomitant]
     Active Substance: BENDROFLUMETHIAZIDE
     Dosage: 1 DOSAGE FORMS DAILY; IN MORNING.
  6. CODEINE PHOSPHATE [Concomitant]
     Active Substance: CODEINE PHOSPHATE
     Dosage: 4 DOSAGE FORMS DAILY; WHEN NEEDED.
     Dates: start: 20191030
  7. LAXIDO [Concomitant]
     Active Substance: POLYETHYLENE GLYCOL 3350\POTASSIUM CHLORIDE\SODIUM BICARBONATE\SODIUM CHLORIDE
     Dosage: ONE TO BE TAKEN ONCE OR TWICE DAILY DISSOLVED I
     Dates: start: 20201103, end: 20210526
  8. QUETIAPINE. [Concomitant]
     Active Substance: QUETIAPINE
     Dosage: 1 DOSAGE FORMS DAILY; NIGHT
     Dates: start: 20190618
  9. LAMOTRIGINE. [Concomitant]
     Active Substance: LAMOTRIGINE
     Dosage: 1 DOSAGE FORMS DAILY;
     Dates: start: 20181127
  10. AMLODIPINE [Suspect]
     Active Substance: AMLODIPINE BESYLATE
     Dosage: 5 MILLIGRAM DAILY;
     Dates: start: 20210430
  11. EPILIM [Concomitant]
     Active Substance: VALPROATE SODIUM
     Dosage: 2 DOSAGE FORMS DAILY; MORNING AND NIGHT
     Dates: start: 20181127

REACTIONS (3)
  - Diplopia [Recovered/Resolved]
  - Hallucinations, mixed [Recovered/Resolved]
  - Balance disorder [Recovered/Resolved]

NARRATIVE: CASE EVENT DATE: 20210716
